FAERS Safety Report 8392282-9 (Version None)
Quarter: 2012Q2

REPORT INFORMATION
  Report Type: 
  Country: None (occurrence: None)
  Receive Date: 20120529
  Receipt Date: 20120514
  Transmission Date: 20120825
  Serious: Yes (Life-Threatening, Hospitalization)
  Sender: FDA-Public Use
  Company Number: US-ROCHE-675916

PATIENT
  Age: 6 Year
  Sex: Female

DRUGS (4)
  1. MORPHINE [Concomitant]
     Indication: PAIN
     Route: 042
  2. ROCEPHIN [Suspect]
     Indication: PROPHYLAXIS
     Dosage: SPECIFIC INDICATION REPORTED AS BROAD-SPECTRUM ANTIMICROBIAL PROPHYLAXIS.
     Route: 042
  3. ROCEPHIN [Suspect]
     Dosage: SPECIFIC INDICATION REPORTED AS BROAD-SPECTRUM ANTIMICROBIAL PROPHYLAXIS.
     Route: 042
  4. MORPHINE [Concomitant]
     Dosage: REPORTED AS AT A DECREASED DOSE.
     Route: 042

REACTIONS (3)
  - NEUROLOGICAL SYMPTOM [None]
  - HYPOXIC-ISCHAEMIC ENCEPHALOPATHY [None]
  - HAEMOLYSIS [None]
